FAERS Safety Report 6083941-1 (Version None)
Quarter: 2009Q1

REPORT INFORMATION
  Report Type: 
  Country: None (occurrence: None)
  Receive Date: 20090219
  Receipt Date: 20090209
  Transmission Date: 20090719
  Serious: Yes (Hospitalization, Other)
  Sender: FDA-Public Use
  Company Number: US-PFIZER INC-2008098587

PATIENT
  Age: 57 Year
  Sex: Female

DRUGS (4)
  1. ARGATROBAN [Suspect]
  2. LOVENOX [Suspect]
  3. COUMADIN [Concomitant]
     Dosage: UNK
  4. CORTICOSTEROIDS [Concomitant]
     Dosage: UNK

REACTIONS (5)
  - ANAPHYLACTIC SHOCK [None]
  - HYPERSENSITIVITY [None]
  - HYPOTENSION [None]
  - PRURITUS [None]
  - RASH [None]
